FAERS Safety Report 19000116 (Version 1)
Quarter: 2021Q1

REPORT INFORMATION
  Report Type: Spontaneous
  Country: FR (occurrence: FR)
  Receive Date: 20210312
  Receipt Date: 20210312
  Transmission Date: 20210420
  Serious: Yes (Hospitalization)
  Sender: FDA-Public Use
  Company Number: FR-BAXTER-2021BAX004390

PATIENT
  Age: 81 Year
  Sex: Male

DRUGS (3)
  1. CEFTRIAXONE BASE [Suspect]
     Active Substance: CEFTRIAXONE
     Indication: INFLAMMATION
     Route: 041
     Dates: start: 20200803, end: 20200806
  2. METRONIDAZOLE BAXTER 0,5 POUR CENT, SOLUTION INJECTABLE EN POCHE [Suspect]
     Active Substance: METRONIDAZOLE
     Indication: INFLAMMATION
     Route: 041
     Dates: start: 20200803, end: 20200806
  3. AMOXICILLIN. [Suspect]
     Active Substance: AMOXICILLIN
     Indication: INFLAMMATION
     Route: 048
     Dates: start: 20200729, end: 20200803

REACTIONS (4)
  - Condition aggravated [Not Recovered/Not Resolved]
  - Prothrombin time shortened [Not Recovered/Not Resolved]
  - Coagulation factor decreased [Not Recovered/Not Resolved]
  - Coagulopathy [Not Recovered/Not Resolved]

NARRATIVE: CASE EVENT DATE: 20200806
